FAERS Safety Report 21756234 (Version 2)
Quarter: 2023Q2

REPORT INFORMATION
  Report Type: Spontaneous
  Country: US (occurrence: US)
  Receive Date: 20221220
  Receipt Date: 20230406
  Transmission Date: 20230722
  Serious: No
  Sender: FDA-Public Use
  Company Number: US-CARA THERAPEUTICS, INC.-2022-00102-US

PATIENT
  Age: 66 Year
  Sex: Male
  Weight: 23 kg

DRUGS (2)
  1. KORSUVA [Suspect]
     Active Substance: DIFELIKEFALIN ACETATE
     Indication: Product used for unknown indication
     Dosage: 0.7 ML, 3 TIMES A WEEK
     Route: 040
     Dates: start: 20220804, end: 20221001
  2. ATORVASTATIN [Concomitant]
     Active Substance: ATORVASTATIN
     Indication: Blood cholesterol
     Dosage: 40 MG, AT BEDTIME

REACTIONS (1)
  - Confusional state [Recovering/Resolving]

NARRATIVE: CASE EVENT DATE: 20221004
